FAERS Safety Report 7036014-5 (Version None)
Quarter: 2010Q4

REPORT INFORMATION
  Report Type: 
  Country: None (occurrence: None)
  Receive Date: 20101008
  Receipt Date: 20101001
  Transmission Date: 20110411
  Serious: Yes (Other)
  Sender: FDA-Public Use
  Company Number: US-US-EMD SERONO, INC.-7020022

PATIENT
  Sex: Female

DRUGS (4)
  1. REBIF [Suspect]
     Indication: MULTIPLE SCLEROSIS
     Route: 058
     Dates: start: 20100401
  2. POTASSIUM PILL [Concomitant]
     Indication: CARDIAC DISORDER
     Route: 048
     Dates: end: 20100901
  3. POTASSIUM PILL [Concomitant]
     Route: 048
     Dates: start: 20100901
  4. WILD RED YEAST RICE [Concomitant]
     Indication: BLOOD CHOLESTEROL INCREASED

REACTIONS (7)
  - BLOOD GLUCOSE INCREASED [None]
  - EJECTION FRACTION DECREASED [None]
  - FATIGUE [None]
  - INJECTION SITE ERYTHEMA [None]
  - INJECTION SITE PAIN [None]
  - LABORATORY TEST ABNORMAL [None]
  - PAIN [None]
